FAERS Safety Report 9853864 (Version 1)
Quarter: 2014Q1

REPORT INFORMATION
  Report Type: Spontaneous
  Country: US (occurrence: US)
  Receive Date: 20140129
  Receipt Date: 20140129
  Transmission Date: 20141002
  Serious: Yes (Disabling, Other)
  Sender: FDA-Public Use
  Company Number: CHPA2014US001190

PATIENT
  Sex: Female

DRUGS (1)
  1. KERI SHEA BUTTER [Suspect]
     Route: 061

REACTIONS (5)
  - Chemical injury [Unknown]
  - Skin disorder [Unknown]
  - Activities of daily living impaired [Unknown]
  - Discomfort [Unknown]
  - Pain [Unknown]
